FAERS Safety Report 9459794 (Version 4)
Quarter: 2013Q4

REPORT INFORMATION
  Report Type: Spontaneous
  Country: JP (occurrence: JP)
  Receive Date: 20130815
  Receipt Date: 20131022
  Transmission Date: 20140711
  Serious: Yes (Death, Hospitalization, Other)
  Sender: FDA-Public Use
  Company Number: JP-UCBSA-094711

PATIENT
  Age: 76 Year
  Sex: Male
  Weight: 50 kg

DRUGS (10)
  1. E KEPPRA [Suspect]
     Indication: EPILEPSY
     Dosage: STERENGTH:250 MG
     Route: 048
     Dates: start: 20130605, end: 20130619
  2. FRANDOL [Suspect]
     Indication: ANGINA PECTORIS
     Dosage: DIALY DOSE: 40 MG
     Route: 048
     Dates: end: 20130726
  3. DILTIAZEM HYDROCHLORIDE [Suspect]
     Indication: HYPERTENSION
     Dosage: DAILY DOSE: 100 MG
     Route: 048
     Dates: end: 20130726
  4. DEPAKENE-R [Suspect]
     Indication: EPILEPSY
     Dosage: DAILY DOSE: 800 MG
     Route: 048
     Dates: start: 20130605, end: 20130726
  5. LANSOPRAZOLE-OD [Suspect]
     Indication: GASTROOESOPHAGEAL REFLUX DISEASE
     Dosage: DAILY DOSE: 30 MG
     Route: 048
     Dates: start: 20130525, end: 20130726
  6. KETAS [Suspect]
     Indication: CEREBRAL INFARCTION
     Dosage: DAILY DOSE: 30 MG
     Route: 048
     Dates: start: 20130528, end: 20130726
  7. LOXOPROFEN [Suspect]
     Indication: CEREBRAL INFARCTION
     Dosage: DIALY DOSE: 180 MG
     Route: 048
     Dates: start: 20130607, end: 20130726
  8. MUCOSTA [Suspect]
     Indication: ARTHRITIS
     Dosage: DAILY DOSE: 300 MG
     Route: 048
     Dates: start: 20130522, end: 20130726
  9. LAMICTAL [Suspect]
     Indication: GASTRITIS
     Route: 048
  10. CELECOX [Concomitant]
     Dosage: UNKNOWN DOSE
     Route: 048

REACTIONS (3)
  - Sepsis [Fatal]
  - Pancytopenia [Recovered/Resolved]
  - Cholecystitis [Unknown]
